FAERS Safety Report 6330543-5 (Version None)
Quarter: 2009Q3

REPORT INFORMATION
  Report Type: 
  Country: None (occurrence: None)
  Receive Date: 20090827
  Receipt Date: 20090817
  Transmission Date: 20100115
  Serious: Yes (Hospitalization)
  Sender: FDA-Public Use
  Company Number: JP-ASTRAZENECA-2009SE09524

PATIENT
  Age: 55 Year
  Sex: Female

DRUGS (1)
  1. MEROPEN [Suspect]
     Indication: PANCREATITIS ACUTE
     Route: 042
     Dates: start: 20090802, end: 20090816

REACTIONS (1)
  - PLATELET COUNT INCREASED [None]
